FAERS Safety Report 11922099 (Version 2)
Quarter: 2016Q1

REPORT INFORMATION
  Report Type: Spontaneous
  Country: US (occurrence: US)
  Receive Date: 20160115
  Receipt Date: 20160315
  Transmission Date: 20160526
  Serious: Yes (Other)
  Sender: FDA-Public Use
  Company Number: US-PFIZER INC-2015468039

PATIENT
  Age: 86 Year
  Sex: Male
  Weight: 58.97 kg

DRUGS (1)
  1. TOVIAZ [Suspect]
     Active Substance: FESOTERODINE FUMARATE
     Indication: URINARY INCONTINENCE
     Dosage: 20 MG, 1X/DAY
     Dates: start: 20151222, end: 20151223

REACTIONS (6)
  - Dyspepsia [Not Recovered/Not Resolved]
  - Pyrexia [Unknown]
  - Chills [Unknown]
  - Volvulus of small bowel [Recovered/Resolved]
  - Abdominal pain upper [Unknown]
  - Dry mouth [Recovered/Resolved]

NARRATIVE: CASE EVENT DATE: 20151222
